FAERS Safety Report 9949266 (Version 2)
Quarter: 2014Q1

REPORT INFORMATION
  Report Type: Spontaneous
  Country: US (occurrence: US)
  Receive Date: 20140304
  Receipt Date: 20140304
  Transmission Date: 20141002
  Serious: Yes (Other)
  Sender: FDA-Public Use
  Company Number: US-SHIRE-ALL1-2014-01100

PATIENT
  Sex: 0

DRUGS (2)
  1. VYVANSE [Suspect]
     Indication: ATTENTION DEFICIT/HYPERACTIVITY DISORDER
     Dosage: 20 MG, 1X/DAY:QD
     Route: 048
     Dates: start: 20131002
  2. VYVANSE [Suspect]
     Dosage: UNK UNK, UNKNOWN (HALF OF A 20 MG CAPSULE)
     Route: 048
     Dates: start: 20140131, end: 20140214

REACTIONS (5)
  - Hallucinations, mixed [Recovered/Resolved]
  - Drug prescribing error [Recovered/Resolved]
  - Decreased appetite [Unknown]
  - Poor quality sleep [Unknown]
  - Mood swings [Unknown]
